FAERS Safety Report 9851191 (Version 1)
Quarter: 2014Q1

REPORT INFORMATION
  Report Type: Spontaneous
  Country: US (occurrence: US)
  Receive Date: 20140128
  Receipt Date: 20140128
  Transmission Date: 20141002
  Serious: No
  Sender: FDA-Public Use
  Company Number: US-SA-2013SA127583

PATIENT
  Age: 64 Year
  Sex: Male
  Weight: 179 kg

DRUGS (8)
  1. LASIX [Suspect]
     Indication: OEDEMA PERIPHERAL
     Route: 048
  2. LASIX [Interacting]
     Indication: OEDEMA PERIPHERAL
     Route: 048
  3. DRUG USED IN DIABETES [Interacting]
     Route: 048
     Dates: start: 20131003
  4. TOPROL XL [Concomitant]
     Indication: HYPERTENSION
  5. GLIMEPIRIDE [Concomitant]
     Indication: DIABETES MELLITUS
  6. SIMVASTATIN [Concomitant]
     Indication: HYPERLIPIDAEMIA
  7. ASPIRIN [Concomitant]
  8. LOSARTAN [Concomitant]
     Indication: HYPERTENSION

REACTIONS (8)
  - Renal pain [Recovering/Resolving]
  - Abnormal loss of weight [Unknown]
  - Drug interaction [Unknown]
  - Back pain [Recovering/Resolving]
  - Pollakiuria [Not Recovered/Not Resolved]
  - Micturition urgency [Unknown]
  - Urine output increased [Recovering/Resolving]
  - Dehydration [Unknown]
